FAERS Safety Report 16624279 (Version 1)
Quarter: 2019Q3

REPORT INFORMATION
  Report Type: Spontaneous
  Country: KR (occurrence: KR)
  Receive Date: 20190724
  Receipt Date: 20190724
  Transmission Date: 20191004
  Serious: Yes (Hospitalization)
  Sender: FDA-Public Use
  Company Number: KR-TEVA-2019-KR-1081469

PATIENT
  Age: 46 Year
  Sex: Female

DRUGS (1)
  1. TAMOXIFEN [Suspect]
     Active Substance: TAMOXIFEN
     Indication: INVASIVE DUCTAL BREAST CARCINOMA
     Dosage: 20 MILLIGRAM DAILY; STARTED ON POST-OPERATIVE DAY 14; DISCONTINUED ON POST-OPERATIVE DAY 21
     Route: 065

REACTIONS (3)
  - Pruritus [Unknown]
  - Adverse event [Unknown]
  - Eosinophilic pneumonia [Recovering/Resolving]
